FAERS Safety Report 9055426 (Version 1)
Quarter: 2013Q1

REPORT INFORMATION
  Report Type: Spontaneous
  Country: DE (occurrence: FI)
  Receive Date: 20130206
  Receipt Date: 20130206
  Transmission Date: 20140127
  Serious: Yes (Hospitalization)
  Sender: FDA-Public Use
  Company Number: 2013SP000321

PATIENT
  Age: 55 Year
  Sex: Female

DRUGS (2)
  1. ALVESCO [Suspect]
     Indication: ASTHMA
     Route: 055
     Dates: start: 201212
  2. BUDESONIDE [Concomitant]
     Indication: ASTHMA

REACTIONS (1)
  - Arrhythmia [Recovered/Resolved]
